FAERS Safety Report 13410592 (Version 4)
Quarter: 2022Q3

REPORT INFORMATION
  Report Type: Spontaneous
  Country: US (occurrence: US)
  Receive Date: 20170406
  Receipt Date: 20220707
  Transmission Date: 20221026
  Serious: No
  Sender: FDA-Public Use
  Company Number: US-JNJFOC-20170300675

PATIENT
  Sex: Male

DRUGS (8)
  1. RISPERDAL [Suspect]
     Active Substance: RISPERIDONE
     Indication: Depression
     Route: 048
     Dates: start: 20010810
  2. RISPERDAL [Suspect]
     Active Substance: RISPERIDONE
     Indication: Bipolar disorder
     Route: 048
     Dates: start: 20010811, end: 20010814
  3. RISPERDAL [Suspect]
     Active Substance: RISPERIDONE
     Indication: Affective disorder
     Route: 048
     Dates: start: 20010814, end: 20010816
  4. RISPERDAL [Suspect]
     Active Substance: RISPERIDONE
     Indication: Paranoia
     Route: 048
     Dates: start: 20010816, end: 20011016
  5. RISPERDAL [Suspect]
     Active Substance: RISPERIDONE
     Route: 048
     Dates: start: 20011021
  6. RISPERDAL [Suspect]
     Active Substance: RISPERIDONE
     Route: 048
     Dates: start: 20011030
  7. RISPERDAL [Suspect]
     Active Substance: RISPERIDONE
     Route: 048
     Dates: start: 20011128
  8. CLONIDINE [Suspect]
     Active Substance: CLONIDINE
     Indication: Product used for unknown indication
     Route: 065

REACTIONS (3)
  - Emotional distress [Unknown]
  - Gynaecomastia [Unknown]
  - Hypersomnia [Unknown]

NARRATIVE: CASE EVENT DATE: 20010101
